FAERS Safety Report 7585968-7 (Version None)
Quarter: 2011Q2

REPORT INFORMATION
  Report Type: 
  Country: None (occurrence: None)
  Receive Date: 20110624
  Receipt Date: 20110610
  Transmission Date: 20111010
  Serious: Yes (Hospitalization)
  Sender: FDA-Public Use
  Company Number: 2011MA007114

PATIENT
  Age: 66 Year
  Sex: Female

DRUGS (1)
  1. MICONAZOLE NITRATE [Suspect]
     Indication: FUNGAL INFECTION
     Dosage: X1, VAG
     Route: 067
     Dates: start: 20110527, end: 20110528

REACTIONS (5)
  - BLOOD TEST ABNORMAL [None]
  - FLANK PAIN [None]
  - HYSTERECTOMY [None]
  - GAIT DISTURBANCE [None]
  - FALLOPIAN TUBE DISORDER [None]
